FAERS Safety Report 18292741 (Version 2)
Quarter: 2020Q4

REPORT INFORMATION
  Report Type: Spontaneous
  Country: PT (occurrence: PT)
  Receive Date: 20200922
  Receipt Date: 20201102
  Transmission Date: 20210113
  Serious: Yes (Life-Threatening)
  Sender: FDA-Public Use
  Company Number: PT-AMGEN-PRTSP2020152585

PATIENT
  Age: 69 Year
  Sex: Female

DRUGS (1)
  1. ENBREL [Suspect]
     Active Substance: ETANERCEPT
     Indication: PSORIATIC ARTHROPATHY
     Dosage: UNK
     Route: 065
     Dates: start: 20090508

REACTIONS (1)
  - Invasive breast carcinoma [Unknown]

NARRATIVE: CASE EVENT DATE: 20200331
